FAERS Safety Report 10259872 (Version 1)
Quarter: 2014Q2

REPORT INFORMATION
  Report Type: Spontaneous
  Country: US (occurrence: US)
  Receive Date: 20140625
  Receipt Date: 20140625
  Transmission Date: 20141212
  Serious: Yes (Life-Threatening, Hospitalization)
  Sender: FDA-Public Use
  Company Number: US-ACTAVIS-2014-14096

PATIENT
  Age: 19 Year
  Sex: Female

DRUGS (1)
  1. AMLODIPINE BESYLATE (WATSON LABORATORIES) [Suspect]
     Indication: INTENTIONAL OVERDOSE
     Dosage: 10 MG, TOTAL (INGESTED 20 TABLETS)
     Route: 048

REACTIONS (5)
  - Metabolic acidosis [Recovering/Resolving]
  - Angioedema [Recovering/Resolving]
  - Hyperglycaemia [Recovering/Resolving]
  - Hypotension [Recovering/Resolving]
  - Intentional overdose [Recovering/Resolving]
